FAERS Safety Report 9364630 (Version 1)
Quarter: 2013Q2

REPORT INFORMATION
  Report Type: Report from Study
  Country: JP (occurrence: JP)
  Receive Date: 20130624
  Receipt Date: 20130624
  Transmission Date: 20140414
  Serious: No
  Sender: FDA-Public Use
  Company Number: PHHY2009JP28852

PATIENT
  Age: 34 Year
  Sex: Male

DRUGS (13)
  1. AMN107 [Suspect]
     Indication: CHRONIC MYELOID LEUKAEMIA
     Dosage: 800 MG, DAILY
     Route: 048
     Dates: start: 20090702, end: 20090702
  2. AMN107 [Suspect]
     Dosage: 600 MG, DAILY
     Route: 048
     Dates: start: 20090703, end: 20090703
  3. AMN107 [Suspect]
     Dosage: 400 MG, DAILY
     Route: 048
     Dates: start: 20090704, end: 20090712
  4. AMN107 [Suspect]
     Dosage: 800 MG, DAILY
     Route: 048
     Dates: start: 20090713, end: 20110616
  5. MARZULENE S [Concomitant]
     Dosage: 1.5 G, DAILY
     Route: 048
     Dates: start: 20090702
  6. MIYA-BM [Concomitant]
     Dosage: 3 G, DAILY
     Route: 048
     Dates: start: 20090702
  7. MUCODYNE [Concomitant]
     Dosage: 1500 MG, DAILY
     Route: 048
     Dates: start: 20090702
  8. RESPLEN [Concomitant]
     Dosage: 60 MG, DAILY
     Route: 048
     Dates: start: 20090702
  9. GASTER [Concomitant]
     Dosage: 20 MG, DAILY
     Route: 048
     Dates: start: 20090702
  10. HOKUNALIN [Concomitant]
     Dosage: 2 MG, DAILY
     Route: 048
     Dates: start: 20090702
  11. NU-LOTAN [Concomitant]
     Dosage: 25 MG, UNK
     Route: 048
     Dates: start: 20091001
  12. NAUZELIN [Concomitant]
     Indication: PROPHYLAXIS
     Dosage: 30 MG, UNK
     Route: 048
  13. MALFA [Concomitant]
     Dosage: 45 ML, UNK
     Route: 048
     Dates: start: 20100826, end: 20110616

REACTIONS (3)
  - Lipase increased [Recovered/Resolved]
  - Vomiting [Recovered/Resolved]
  - Blood uric acid increased [Unknown]
